FAERS Safety Report 5963071-7 (Version None)
Quarter: 2008Q4

REPORT INFORMATION
  Report Type: 
  Country: None (occurrence: None)
  Receive Date: 20081124
  Receipt Date: 20081112
  Transmission Date: 20090506
  Serious: Yes (Hospitalization)
  Sender: FDA-Public Use
  Company Number: US-ROCHE-595480

PATIENT
  Sex: Female
  Weight: 47.6 kg

DRUGS (1)
  1. CAPECITABINE [Suspect]
     Dosage: STRENGTH: 500, DOSE: 5 (ONE TIME 2 DOSES AND SECOND TIME 3 DOSES)
     Route: 048

REACTIONS (1)
  - RESPIRATORY FAILURE [None]
